FAERS Safety Report 15664271 (Version 1)
Quarter: 2018Q4

REPORT INFORMATION
  Report Type: Spontaneous
  Country: US (occurrence: US)
  Receive Date: 20181116
  Receipt Date: 20181116
  Transmission Date: 20190205
  Serious: Yes (Hospitalization)
  Sender: FDA-Public Use
  Company Number: None

PATIENT
  Age: 71 Year
  Sex: Female

DRUGS (15)
  1. LETAIRIS [Suspect]
     Active Substance: AMBRISENTAN
     Indication: HEART DISEASE CONGENITAL
     Route: 048
     Dates: start: 201804
  2. PRAVASTATIN. [Concomitant]
     Active Substance: PRAVASTATIN
  3. ALBUTEROL HFA [Concomitant]
     Active Substance: ALBUTEROL SULFATE
  4. SPIRIVA [Concomitant]
     Active Substance: TIOTROPIUM BROMIDE MONOHYDRATE
  5. VITAMIN B12 [Concomitant]
     Active Substance: CYANOCOBALAMIN
  6. REVATIO [Concomitant]
     Active Substance: SILDENAFIL CITRATE
  7. QUAIFENESIN [Concomitant]
  8. LEVOTHYROXINE. [Concomitant]
     Active Substance: LEVOTHYROXINE
  9. TYLENOL [Concomitant]
     Active Substance: ACETAMINOPHEN
  10. MAXIPIME [Concomitant]
     Active Substance: CEFEPIME HYDROCHLORIDE
  11. MARINOL [Concomitant]
     Active Substance: DRONABINOL
  12. ASPIRIN. [Concomitant]
     Active Substance: ASPIRIN
  13. DUONEB NEBULIZER SOLN [Concomitant]
  14. LOV [Concomitant]
  15. PANTOPRAZOLE [Concomitant]
     Active Substance: PANTOPRAZOLE

REACTIONS (4)
  - Liver abscess [None]
  - Peptic ulcer perforation [None]
  - Septic shock [None]
  - Malnutrition [None]

NARRATIVE: CASE EVENT DATE: 20181025
